FAERS Safety Report 6381585-5 (Version None)
Quarter: 2009Q3

REPORT INFORMATION
  Report Type: 
  Country: None (occurrence: None)
  Receive Date: 20090925
  Receipt Date: 20090911
  Transmission Date: 20100115
  Serious: Yes (Hospitalization, Other)
  Sender: FDA-Public Use
  Company Number: 2009PV000068

PATIENT
  Age: 18 Year
  Sex: Female

DRUGS (4)
  1. DEPOCYT [Suspect]
     Indication: PROPHYLACTIC CHEMOTHERAPY
     Dosage: 50 MG;INTH
     Route: 037
     Dates: start: 20081204, end: 20090831
  2. MERCAPTOPURINE [Concomitant]
  3. METHOTREXATE [Concomitant]
  4. COTRIM [Concomitant]

REACTIONS (10)
  - ATRIAL FIBRILLATION [None]
  - BRADYCARDIA [None]
  - DISEASE PROGRESSION [None]
  - HEADACHE [None]
  - HYPOTENSION [None]
  - INTRACRANIAL HYPOTENSION [None]
  - NAUSEA [None]
  - POST LUMBAR PUNCTURE SYNDROME [None]
  - PYREXIA [None]
  - VOMITING [None]
